FAERS Safety Report 5122544-X (Version None)
Quarter: 2006Q4

REPORT INFORMATION
  Report Type: 
  Country: None (occurrence: None)
  Receive Date: 20061005
  Receipt Date: 20061005
  Transmission Date: 20070319
  Serious: No
  Sender: FDA-Public Use
  Company Number: None

PATIENT
  Age: 43 Year
  Sex: Female
  Weight: 57.6068 kg

DRUGS (2)
  1. MIRAPEX [Suspect]
     Indication: PARKINSON'S DISEASE
     Dosage: 3 PILLS 3 TIMES A DAY 7 DAYS A WEEK PO
     Route: 048
     Dates: start: 20040801, end: 20060830
  2. MIRAPEX [Suspect]
     Indication: TREMOR
     Dosage: 3 PILLS 3 TIMES A DAY 7 DAYS A WEEK PO
     Route: 048
     Dates: start: 20040801, end: 20060830

REACTIONS (5)
  - ABNORMAL BEHAVIOUR [None]
  - DEPENDENCE [None]
  - PATHOLOGICAL GAMBLING [None]
  - SEXUAL DYSFUNCTION [None]
  - THEFT [None]
